FAERS Safety Report 4711068-7 (Version None)
Quarter: 2005Q3

REPORT INFORMATION
  Report Type: 
  Country: None (occurrence: None)
  Receive Date: 20050708
  Receipt Date: 20050708
  Transmission Date: 20060218
  Serious: Yes (Hospitalization)
  Sender: FDA-Public Use
  Company Number: None

PATIENT
  Sex: Male
  Weight: 125 kg

DRUGS (8)
  1. LEXAPRO [Suspect]
     Indication: DEPRESSION
     Dosage: 20MG QDAY ORAL
     Route: 048
     Dates: start: 20050703, end: 20050704
  2. MIRAPEX [Concomitant]
  3. CARDURA [Concomitant]
  4. VASOTEC [Concomitant]
  5. LEXAPRO [Concomitant]
  6. DEPAKOTE [Concomitant]
  7. TRAZODONE [Concomitant]
  8. ULTRAM [Concomitant]

REACTIONS (2)
  - HALLUCINATION [None]
  - MENTAL STATUS CHANGES [None]
